FAERS Safety Report 25145719 (Version 1)
Quarter: 2025Q2

REPORT INFORMATION
  Report Type: Spontaneous
  Country: US (occurrence: US)
  Receive Date: 20250401
  Receipt Date: 20250401
  Transmission Date: 20250716
  Serious: Yes (Other)
  Sender: PFIZER
  Company Number: US-PFIZER INC-202400297627

PATIENT
  Age: 62 Year
  Sex: Male

DRUGS (1)
  1. XELJANZ XR [Suspect]
     Active Substance: TOFACITINIB CITRATE

REACTIONS (4)
  - Knee arthroplasty [Unknown]
  - Product dispensing error [Unknown]
  - Gait disturbance [Unknown]
  - Post procedural infection [Unknown]

NARRATIVE: CASE EVENT DATE: 20170101
